FAERS Safety Report 4456379-8 (Version None)
Quarter: 2004Q3

REPORT INFORMATION
  Report Type: 
  Country: None (occurrence: None)
  Receive Date: 20040902
  Receipt Date: 20040526
  Transmission Date: 20050211
  Serious: No
  Sender: FDA-Public Use
  Company Number: 200414114BWH

PATIENT
  Age: 51 Year
  Sex: Male
  Weight: 88.4514 kg

DRUGS (1)
  1. LEVITRA [Suspect]
     Indication: ERECTILE DYSFUNCTION
     Dosage: 10 MG, TOTAL DAILY, ORAL
     Route: 048
     Dates: start: 20040228

REACTIONS (1)
  - RECTAL HAEMORRHAGE [None]
